FAERS Safety Report 5888181-4 (Version None)
Quarter: 2008Q3

REPORT INFORMATION
  Report Type: 
  Country: None (occurrence: None)
  Receive Date: 20080918
  Receipt Date: 20080910
  Transmission Date: 20090109
  Serious: Yes (Other)
  Sender: FDA-Public Use
  Company Number: US-GENENTECH-266515

PATIENT
  Sex: Male
  Weight: 34.2 kg

DRUGS (1)
  1. HUMATROPE [Suspect]
     Indication: UNEVALUABLE EVENT
     Dosage: 3.3 MG, QD
     Route: 058
     Dates: start: 20070117, end: 20080814

REACTIONS (1)
  - VENOUS ANEURYSM [None]
